FAERS Safety Report 6504325-5 (Version None)
Quarter: 2009Q4

REPORT INFORMATION
  Report Type: 
  Country: None (occurrence: None)
  Receive Date: 20091217
  Receipt Date: 20091209
  Transmission Date: 20100525
  Serious: Yes (Hospitalization)
  Sender: FDA-Public Use
  Company Number: TR-WATSON-2009-09866

PATIENT
  Age: 45 Year
  Sex: Female

DRUGS (5)
  1. TRAZODONE HYDROCHLORIDE [Suspect]
     Indication: MAJOR DEPRESSION
     Dosage: 100 MG, DAILY
  2. FLUOXETINE HCL [Suspect]
     Indication: DEPRESSION
  3. SERTRALINE HYDROCHLORIDE [Suspect]
     Indication: MAJOR DEPRESSION
     Dosage: 50 MG, DAILY
  4. VENLAFAXINE [Suspect]
     Indication: MAJOR DEPRESSION
     Dosage: 37.5-75 MG, DAILY
  5. ANTIINFLAMMATORY/ANTIRHEUMATIC NON-STEROIDS [Suspect]
     Indication: TOOTH ABSCESS

REACTIONS (1)
  - THROMBOCYTOPENIA [None]
